FAERS Safety Report 5583645-5 (Version None)
Quarter: 2007Q4

REPORT INFORMATION
  Report Type: 
  Country: None (occurrence: None)
  Receive Date: 20071231
  Receipt Date: 20071219
  Transmission Date: 20080405
  Serious: Yes (Hospitalization)
  Sender: FDA-Public Use
  Company Number: 2007BI026847

PATIENT
  Age: 58 Year
  Sex: Female

DRUGS (1)
  1. AVONEX [Suspect]
     Indication: MULTIPLE SCLEROSIS
     Dosage: 30 UG QW IM
     Route: 030
     Dates: start: 20071112, end: 20071212

REACTIONS (4)
  - HYPOAESTHESIA [None]
  - INFLUENZA LIKE ILLNESS [None]
  - PARAESTHESIA [None]
  - VISUAL DISTURBANCE [None]
